FAERS Safety Report 9788925 (Version 1)
Quarter: 2013Q4

REPORT INFORMATION
  Report Type: Spontaneous
  Country: CN (occurrence: CN)
  Receive Date: 20131230
  Receipt Date: 20131230
  Transmission Date: 20140711
  Serious: Yes (Hospitalization)
  Sender: FDA-Public Use
  Company Number: CN-GLAXOSMITHKLINE-B0956095A

PATIENT
  Age: 8 Year
  Sex: Female

DRUGS (1)
  1. FLIXOTIDE [Suspect]
     Indication: ASTHMA
     Route: 055
     Dates: start: 2008

REACTIONS (4)
  - Asthma [Unknown]
  - Pneumonia mycoplasmal [Recovered/Resolved]
  - Dysgeusia [Not Recovered/Not Resolved]
  - Cough [Unknown]
